FAERS Safety Report 23987609 (Version 1)
Quarter: 2024Q2

REPORT INFORMATION
  Report Type: Spontaneous
  Country: BE (occurrence: BE)
  Receive Date: 20240618
  Receipt Date: 20240618
  Transmission Date: 20240716
  Serious: Yes (Death, Hospitalization)
  Sender: FDA-Public Use
  Company Number: BE-BIOGEN-2024BI01269458

PATIENT
  Age: 47 Year
  Sex: Female

DRUGS (15)
  1. TYSABRI [Suspect]
     Active Substance: NATALIZUMAB
     Indication: Multiple sclerosis
     Dosage: 2X150MG
     Route: 050
     Dates: end: 20240418
  2. DALFAMPRIDINE [Concomitant]
     Active Substance: DALFAMPRIDINE
     Indication: Product used for unknown indication
     Dosage: 3/D, 7U 11U 16U
     Route: 050
  3. BACLOFEN [Concomitant]
     Active Substance: BACLOFEN
     Indication: Product used for unknown indication
     Dosage: 10 MG, 4/D, 7U 12U 17U 20U
     Route: 050
  4. CETIRIZINE [Concomitant]
     Active Substance: CETIRIZINE HYDROCHLORIDE
     Indication: Product used for unknown indication
     Dosage: 1/D, 22U
     Route: 050
  5. DICLOFENAC [Concomitant]
     Active Substance: DICLOFENAC
     Indication: Product used for unknown indication
     Dosage: TABL RETARD  75 MG), 75 MG, 2/D, 8U 18U
     Route: 050
  6. D-vital [Concomitant]
     Indication: Product used for unknown indication
     Dosage: (KAUWTB FRT SINAAS 1000MG/880IE), 1 TABL, 1/D, 12U
     Route: 050
  7. ETHINYL ESTRADIOL\GESTODENE [Concomitant]
     Active Substance: ETHINYL ESTRADIOL\GESTODENE
     Indication: Product used for unknown indication
     Dosage: 1 TABL, 1/D, 22U
     Route: 050
  8. OMEPRAZOLE [Concomitant]
     Active Substance: DONEPEZIL HYDROCHLORIDE\OMEPRAZOLE\OMEPRAZOLE MAGNESIUM
     Indication: Product used for unknown indication
     Dosage: 20 MG, 1/D, 8U
     Route: 050
  9. OXYBUTYNIN CHLORIDE [Concomitant]
     Active Substance: OXYBUTYNIN CHLORIDE
     Indication: Product used for unknown indication
     Dosage: 5 MG, 1/D, 20U
     Route: 050
  10. ACETAMINOPHEN [Concomitant]
     Active Substance: ACETAMINOPHEN
     Indication: Product used for unknown indication
     Dosage: 1 G, 4/D, 8U 12U 17U 22U
     Route: 050
  11. QUESTRAN [Concomitant]
     Active Substance: CHOLESTYRAMINE
     Indication: Product used for unknown indication
     Dosage: 4 G, 1/D, 20U
     Route: 050
  12. SERTRALINE [Concomitant]
     Active Substance: SERTRALINE HYDROCHLORIDE
     Indication: Product used for unknown indication
     Dosage: 100 MG, 1/D, 22U
     Route: 050
  13. OTILONIUM BROMIDE [Concomitant]
     Active Substance: OTILONIUM BROMIDE
     Indication: Product used for unknown indication
     Dosage: 40 MG, 3/D, 8U 12U 20U
     Route: 050
  14. CYANOCOBALAMIN\FOLIC ACID\PYRIDOXINE HYDROCHLORIDE [Concomitant]
     Active Substance: CYANOCOBALAMIN\FOLIC ACID\PYRIDOXINE HYDROCHLORIDE
     Indication: Product used for unknown indication
     Dosage: 1 TABL, 1/D, 12U
     Route: 050
  15. ZOLPIDEM [Concomitant]
     Active Substance: ZOLPIDEM TARTRATE
     Indication: Product used for unknown indication
     Dosage: 5 MG, 1/D, 22U
     Route: 050

REACTIONS (2)
  - Pulmonary embolism [Fatal]
  - COVID-19 [Unknown]

NARRATIVE: CASE EVENT DATE: 20230911
